FAERS Safety Report 24951688 (Version 1)
Quarter: 2025Q1

REPORT INFORMATION
  Report Type: Spontaneous
  Country: US (occurrence: US)
  Receive Date: 20250210
  Receipt Date: 20250210
  Transmission Date: 20250409
  Serious: No
  Sender: INTRA-CELLULAR THERAPIES
  Company Number: US-INTRA-CELLULAR THERAPIES, INC.-2024ICT01693

PATIENT
  Sex: Female

DRUGS (1)
  1. CAPLYTA [Suspect]
     Active Substance: LUMATEPERONE
     Indication: Bipolar II disorder

REACTIONS (6)
  - Amnesia [Unknown]
  - Brain fog [Unknown]
  - Anxiety [Unknown]
  - Delusion [Unknown]
  - Affect lability [Unknown]
  - Tremor [Unknown]
